FAERS Safety Report 4414414-7 (Version None)
Quarter: 2004Q3

REPORT INFORMATION
  Report Type: 
  Country: None (occurrence: None)
  Receive Date: 20040701
  Receipt Date: 20031013
  Transmission Date: 20050211
  Serious: Yes (Other)
  Sender: FDA-Public Use
  Company Number: 2003036044

PATIENT
  Sex: Female

DRUGS (3)
  1. VISTARIL [Suspect]
     Indication: MIGRAINE
     Dosage: 50 MG
     Dates: start: 19990312
  2. NALBUPHINE HCL [Suspect]
     Indication: MIGRAINE
     Dates: start: 19990312
  3. ATARAX [Suspect]
     Indication: ILL-DEFINED DISORDER

REACTIONS (1)
  - CONVULSION [None]
